FAERS Safety Report 5605828-8 (Version None)
Quarter: 2008Q1

REPORT INFORMATION
  Report Type: 
  Country: None (occurrence: None)
  Receive Date: 20080129
  Receipt Date: 20080122
  Transmission Date: 20080703
  Serious: Yes (Hospitalization)
  Sender: FDA-Public Use
  Company Number: PHHO2008RU01357

PATIENT
  Age: 50 Year
  Sex: Female
  Weight: 110 kg

DRUGS (6)
  1. LMF237 VS VILDAGLIPTIN VS METFORMIN [Suspect]
     Dosage: CODE NOT BROKEN
     Route: 048
     Dates: start: 20071031
  2. INDAPAMIDE [Concomitant]
  3. LISINOPRIL [Concomitant]
  4. ASPIRIN [Concomitant]
  5. BISOPROLOL FUMARATE [Concomitant]
  6. SIMVASTATIN [Concomitant]

REACTIONS (1)
  - ERYSIPELAS [None]
